FAERS Safety Report 7430882-0 (Version None)
Quarter: 2011Q2

REPORT INFORMATION
  Report Type: 
  Country: None (occurrence: None)
  Receive Date: 20110421
  Receipt Date: 20110331
  Transmission Date: 20111010
  Serious: No
  Sender: FDA-Public Use
  Company Number: US-B.I. PHARMACEUTICALS,INC./RIDGEFIELD-2011-BP-09762BP

PATIENT
  Sex: Female

DRUGS (6)
  1. ANTIBIOTIC [Concomitant]
     Indication: OROPHARYNGEAL PAIN
     Route: 048
  2. LOSARTAN [Concomitant]
     Indication: HYPERTENSION
     Route: 048
  3. SIMVASTATIN [Concomitant]
     Indication: BLOOD CHOLESTEROL INCREASED
     Route: 048
  4. JOINT JUICE [Suspect]
     Indication: PROPHYLAXIS
     Route: 048
  5. ATENOLOL [Concomitant]
     Indication: CARDIAC DISORDER
     Route: 048
  6. PRADAXA [Suspect]
     Indication: CARDIAC DISORDER
     Dosage: 300 MG
     Route: 048
     Dates: start: 20110315

REACTIONS (2)
  - ABDOMINAL PAIN [None]
  - OROPHARYNGEAL PAIN [None]
